FAERS Safety Report 13104764 (Version 3)
Quarter: 2017Q2

REPORT INFORMATION
  Report Type: Spontaneous
  Country: US (occurrence: US)
  Receive Date: 20170111
  Receipt Date: 20170427
  Transmission Date: 20170830
  Serious: No
  Sender: FDA-Public Use
  Company Number: US-PFIZER INC-2017008039

PATIENT
  Age: 72 Year
  Sex: Female
  Weight: 84 kg

DRUGS (7)
  1. PROSTATIN [Concomitant]
     Active Substance: ARCTOSTAPHYLOS UVA-URSI LEAF\URTICA DIOICA
     Indication: BLOOD CHOLESTEROL ABNORMAL
     Dosage: 20 MG, 1X/DAY (ONCE AT NIGHT)
     Dates: start: 2011
  2. ESTRING [Suspect]
     Active Substance: ESTRADIOL
     Dosage: 10 MG, 2X/DAY
     Dates: start: 2016, end: 20170208
  3. LOSARTAN. [Concomitant]
     Active Substance: LOSARTAN
     Indication: HYPERTENSION
     Dosage: 100 MG, 1X/DAY
     Dates: start: 2010
  4. ESTRING [Suspect]
     Active Substance: ESTRADIOL
     Indication: VULVOVAGINAL DRYNESS
     Dosage: 2 MG, EVERY 3 MONTHS
     Route: 067
     Dates: start: 201605
  5. FISH OIL [Concomitant]
     Active Substance: FISH OIL
     Dosage: UNK, 1X/DAY
  6. FLUTICASONE. [Concomitant]
     Active Substance: FLUTICASONE
     Indication: SINUSITIS
     Dosage: 50 MG, 2X/DAY
     Route: 045
     Dates: start: 20161208
  7. FLAXSEED [Concomitant]
     Active Substance: FLAX SEED
     Dosage: UNK, 1X/DAY

REACTIONS (2)
  - Incorrect dose administered [Unknown]
  - Pain in extremity [Recovered/Resolved]

NARRATIVE: CASE EVENT DATE: 2016
